FAERS Safety Report 16278508 (Version 7)
Quarter: 2022Q2

REPORT INFORMATION
  Report Type: Spontaneous
  Country: ES (occurrence: ES)
  Receive Date: 20190506
  Receipt Date: 20220524
  Transmission Date: 20220721
  Serious: Yes (Other)
  Sender: FDA-Public Use
  Company Number: ES-MYLANLABS-2017M1073678

PATIENT
  Age: 72 Year
  Sex: Male

DRUGS (19)
  1. SERTRALINE [Suspect]
     Active Substance: SERTRALINE HYDROCHLORIDE
     Indication: Behaviour disorder
     Dosage: 0.5 DOSAGE FORM, QD (0.5 DF, QD)
     Route: 065
  2. TAMSULOSIN [Suspect]
     Active Substance: TAMSULOSIN
     Indication: Benign prostatic hyperplasia
     Dosage: 1 DOSAGE FORM, BID (1 DF, BID (1-0-1))
     Route: 065
  3. LERCANIDIPINE [Suspect]
     Active Substance: LERCANIDIPINE
     Indication: Hypertension
     Dosage: 1 DOSAGE FORM, QD (1 DF, QD)
     Route: 065
  4. VALSARTAN [Suspect]
     Active Substance: VALSARTAN
     Indication: Hypertension
     Dosage: 1 DOSAGE FORM, QD (1 DF, QD)
     Route: 065
  5. CLOPIDOGREL [Suspect]
     Active Substance: CLOPIDOGREL BISULFATE
     Indication: Prophylaxis
     Dosage: 1 DOSAGE FORM, QD (1 DF, QDA)
     Route: 065
  6. CITICOLINE SODIUM [Suspect]
     Active Substance: CITICOLINE SODIUM
     Indication: Prophylaxis
     Dosage: UNK
     Route: 048
  7. ATORVASTATIN [Suspect]
     Active Substance: ATORVASTATIN
     Indication: Hypercholesterolaemia
     Dosage: 1 DOSAGE FORM, QD (1 DF, QD)
     Route: 065
  8. LORMETAZEPAM [Suspect]
     Active Substance: LORMETAZEPAM
     Indication: Insomnia
     Dosage: 1 DOSAGE FORM, QD (1 DF, QD)
     Route: 065
  9. RISPERIDONE [Suspect]
     Active Substance: RISPERIDONE
     Indication: Epilepsy
     Dosage: UNK
     Route: 065
  10. RISPERIDONE [Suspect]
     Active Substance: RISPERIDONE
     Indication: Behaviour disorder
  11. RANITIDINE [Suspect]
     Active Substance: RANITIDINE
     Indication: Prophylaxis
     Dosage: 1 DOSAGE FORM, QD (1 DF, QD)
     Route: 065
  12. LEVETIRACETAM [Suspect]
     Active Substance: LEVETIRACETAM
     Indication: Product used for unknown indication
     Dosage: 1 DOSAGE FORM, QD (1 DF, QD)
     Route: 065
  13. LEVETIRACETAM [Suspect]
     Active Substance: LEVETIRACETAM
     Dosage: 0.5 DOSAGE FORM, QD (0.5 DF, QD (QAM))
     Route: 065
  14. ASPIRIN [Suspect]
     Active Substance: ASPIRIN
     Indication: Prophylaxis
     Dosage: 1 DOSAGE FORM, QD (1 DF, QD)
     Route: 065
  15. XIGDUO XR [Suspect]
     Active Substance: DAPAGLIFLOZIN PROPANEDIOL\METFORMIN HYDROCHLORIDE
     Indication: Diabetes mellitus
     Dosage: 1 DOSAGE FORM, BID (1 DF, BID)
     Route: 065
  16. INSULIN GLARGINE [Suspect]
     Active Substance: INSULIN GLARGINE
     Indication: Diabetes mellitus
     Dosage: UNK
     Route: 065
  17. SERENOA REPENS WHOLE [Suspect]
     Active Substance: SERENOA REPENS WHOLE
     Indication: Benign prostatic hyperplasia
     Dosage: 1 DOSAGE FORM, BID
     Route: 065
  18. SERENOA REPENS WHOLE [Suspect]
     Active Substance: SERENOA REPENS WHOLE
     Dosage: 1 DOSAGE FORM
  19. GEMFIBROZIL [Suspect]
     Active Substance: GEMFIBROZIL
     Indication: Hypercholesterolaemia
     Dosage: 1 DOSAGE FORM, QD (1 DF, QD)
     Route: 065

REACTIONS (10)
  - Hypertension [Recovered/Resolved]
  - Hyperglycaemia [Recovered/Resolved with Sequelae]
  - Drug abuse [Unknown]
  - Fatigue [Unknown]
  - Blood cholesterol increased [Recovered/Resolved]
  - Blood triglycerides increased [Recovered/Resolved]
  - Overdose [Recovered/Resolved]
  - Treatment noncompliance [Recovered/Resolved]
  - Intentional product misuse [Unknown]
  - Medication error [Unknown]
